FAERS Safety Report 6619042-0 (Version None)
Quarter: 2010Q1

REPORT INFORMATION
  Report Type: 
  Country: None (occurrence: None)
  Receive Date: 20100308
  Receipt Date: 20100303
  Transmission Date: 20100710
  Serious: Yes (Death)
  Sender: FDA-Public Use
  Company Number: US-ABBOTT-10P-163-0629852-00

PATIENT
  Sex: Male

DRUGS (1)
  1. NORVIR TABLETS [Suspect]
     Indication: HIV TEST POSITIVE
     Dosage: 2 PILLS BID
     Route: 048

REACTIONS (1)
  - UNEVALUABLE EVENT [None]
